FAERS Safety Report 18540709 (Version 1)
Quarter: 2020Q4

REPORT INFORMATION
  Report Type: Spontaneous
  Country: US (occurrence: US)
  Receive Date: 20201124
  Receipt Date: 20201124
  Transmission Date: 20210114
  Serious: Yes (Hospitalization)
  Sender: FDA-Public Use
  Company Number: None

PATIENT
  Sex: Male
  Weight: 68 kg

DRUGS (4)
  1. DOXORUBICIN HYDROCHLORIDE. [Suspect]
     Active Substance: DOXORUBICIN HYDROCHLORIDE
     Dates: end: 20201111
  2. SGN-35 (BRENTUXIMAB VEDOTIN) [Suspect]
     Active Substance: BRENTUXIMAB VEDOTIN
     Dates: end: 20201111
  3. DACARBAZINE. [Suspect]
     Active Substance: DACARBAZINE
     Dates: end: 20201111
  4. VINCRISTINE SULFATE. [Suspect]
     Active Substance: VINCRISTINE SULFATE
     Dates: end: 20201111

REACTIONS (3)
  - Septic shock [None]
  - Tachycardia [None]
  - Hypotension [None]

NARRATIVE: CASE EVENT DATE: 20201118
